FAERS Safety Report 15082729 (Version 1)
Quarter: 2018Q2

REPORT INFORMATION
  Report Type: Report from Study
  Country: JP (occurrence: JP)
  Receive Date: 20180628
  Receipt Date: 20180628
  Transmission Date: 20180711
  Serious: Yes (Death)
  Sender: FDA-Public Use
  Company Number: JP-BEH-2018092258

PATIENT
  Age: 78 Year
  Sex: Female
  Weight: 52 kg

DRUGS (7)
  1. BERIPLEX P/N [Suspect]
     Active Substance: COAGULATION FACTOR IX HUMAN\COAGULATION FACTOR VII HUMAN\COAGULATION FACTOR X HUMAN\PROTEIN C\PROTEIN S HUMAN\PROTHROMBIN
     Dosage: UNK
     Route: 042
  2. WARFARIN [Concomitant]
     Active Substance: WARFARIN
     Indication: AORTIC VALVE REPLACEMENT
     Dosage: 3 MG, QD
     Route: 048
     Dates: start: 20170630, end: 20180218
  3. HISICEOL [Concomitant]
     Indication: BRAIN OEDEMA
     Dosage: UNK
     Route: 065
     Dates: start: 20180219, end: 20180223
  4. BERIPLEX P/N [Suspect]
     Active Substance: COAGULATION FACTOR IX HUMAN\COAGULATION FACTOR VII HUMAN\COAGULATION FACTOR X HUMAN\PROTEIN C\PROTEIN S HUMAN\PROTHROMBIN
     Indication: HAEMORRHAGE
     Dosage: 1250 IU, SINGLE
     Route: 042
     Dates: start: 20180219
  5. DILTIAZEM. [Concomitant]
     Active Substance: DILTIAZEM
     Indication: HAEMORRHAGE PROPHYLAXIS
  6. FOSPHENYTOIN [Concomitant]
     Active Substance: FOSPHENYTOIN\FOSPHENYTOIN SODIUM
     Indication: CONVULSION PROPHYLAXIS
     Dosage: UNK
     Route: 065
     Dates: start: 20180219, end: 20180223
  7. DILTIAZEM. [Concomitant]
     Active Substance: DILTIAZEM
     Indication: HYPERTENSION
     Dosage: UNK
     Route: 065
     Dates: start: 20180220, end: 20180222

REACTIONS (1)
  - Death [Fatal]

NARRATIVE: CASE EVENT DATE: 20180223
